FAERS Safety Report 10880621 (Version 2)
Quarter: 2015Q2

REPORT INFORMATION
  Report Type: Spontaneous
  Country: GB (occurrence: GB)
  Receive Date: 20150303
  Receipt Date: 20150408
  Transmission Date: 20150821
  Serious: Yes (Other)
  Sender: FDA-Public Use
  Company Number: GB-AUROBINDO-AUR-APL-2015-01730

PATIENT
  Age: 71 Year
  Sex: Female

DRUGS (6)
  1. METFORMIN [Concomitant]
     Active Substance: METFORMIN HYDROCHLORIDE
     Indication: PRODUCT USED FOR UNKNOWN INDICATION
     Dosage: UNK
     Route: 065
  2. CLOPIDOGREL 75MG  FILM-COATED TABLETS [Suspect]
     Active Substance: CLOPIDOGREL BISULFATE
     Indication: CEREBROVASCULAR ACCIDENT
     Dosage: 75 MG, QD
     Route: 048
     Dates: start: 201306
  3. NYSTATIN. [Concomitant]
     Active Substance: NYSTATIN
     Indication: BLOOD CHOLESTEROL INCREASED
     Route: 065
  4. SANDOZ AMLODIPINE [Suspect]
     Active Substance: AMLODIPINE MALEATE
     Indication: PRODUCT USED FOR UNKNOWN INDICATION
     Dosage: CONCENTRATION WITH 10 MG
     Route: 065
  5. SANDOZ LTD OMEPRAZOLE [Suspect]
     Active Substance: OMEPRAZOLE
     Indication: PRODUCT USED FOR UNKNOWN INDICATION
     Dosage: UNK, EVERY OTHER DAY
     Route: 065
  6. SANDOZ LTD OMEPRAZOLE [Suspect]
     Active Substance: OMEPRAZOLE
     Dosage: ONCE IN TWO DAYS
     Route: 065

REACTIONS (8)
  - Cerebrovascular accident [Unknown]
  - Loss of consciousness [Unknown]
  - Sleep disorder [Not Recovered/Not Resolved]
  - Insomnia [Not Recovered/Not Resolved]
  - Diverticulitis [Unknown]
  - Feeling abnormal [Unknown]
  - Dizziness [Not Recovered/Not Resolved]
  - Fear [Unknown]

NARRATIVE: CASE EVENT DATE: 201306
